FAERS Safety Report 9363929 (Version 2)
Quarter: 2016Q3

REPORT INFORMATION
  Report Type: Spontaneous
  Country: US (occurrence: US)
  Receive Date: 20130624
  Receipt Date: 20160812
  Transmission Date: 20161109
  Serious: Yes (Hospitalization)
  Sender: FDA-Public Use
  Company Number: US-RANBAXY-2013US-70561

PATIENT
  Age: 30 Year
  Sex: Male

DRUGS (5)
  1. NALOXONE [Suspect]
     Active Substance: NALOXONE
     Indication: DRUG DETOXIFICATION
     Route: 065
  2. NALTREXONE [Suspect]
     Active Substance: NALTREXONE
     Indication: DRUG DETOXIFICATION
     Route: 065
  3. PROPOFOL. [Suspect]
     Active Substance: PROPOFOL
     Indication: GENERAL ANAESTHESIA
     Route: 065
  4. MIDAZOLAM [Suspect]
     Active Substance: MIDAZOLAM\MIDAZOLAM HYDROCHLORIDE
     Indication: GENERAL ANAESTHESIA
     Route: 065
  5. ISOFLURANE. [Suspect]
     Active Substance: ISOFLURANE
     Indication: GENERAL ANAESTHESIA
     Route: 065

REACTIONS (3)
  - Mental status changes [Recovered/Resolved]
  - Pulmonary oedema [Recovering/Resolving]
  - Pneumomediastinum [Unknown]
